FAERS Safety Report 8606111-9 (Version None)
Quarter: 2012Q3

REPORT INFORMATION
  Report Type: 
  Country: None (occurrence: None)
  Receive Date: 20120820
  Receipt Date: 20120806
  Transmission Date: 20120928
  Serious: Yes (Hospitalization, Other)
  Sender: FDA-Public Use
  Company Number: FR-ROCHE-1098852

PATIENT
  Age: 86 Year

DRUGS (1)
  1. RITUXIMAB [Suspect]
     Indication: B-CELL LYMPHOMA

REACTIONS (13)
  - TETANUS [None]
  - PNEUMONIA [None]
  - FALL [None]
  - MUSCLE ATROPHY [None]
  - MUSCULOSKELETAL STIFFNESS [None]
  - DYSPHAGIA [None]
  - DECREASED IMMUNE RESPONSIVENESS [None]
  - SPLENOMEGALY [None]
  - PSEUDOMONAS INFECTION [None]
  - MALNUTRITION [None]
  - SKIN FRAGILITY [None]
  - DYSARTHRIA [None]
  - GAIT DISTURBANCE [None]
